FAERS Safety Report 9614454 (Version 1)
Quarter: 2013Q4

REPORT INFORMATION
  Report Type: Spontaneous
  Country: US (occurrence: US)
  Receive Date: 20131011
  Receipt Date: 20131011
  Transmission Date: 20140711
  Serious: Yes (Other)
  Sender: FDA-Public Use
  Company Number: US-ACCORD-019837

PATIENT
  Age: 53 Year
  Sex: Female

DRUGS (5)
  1. ASPIRIN [Concomitant]
  2. VITAMIN D [Concomitant]
  3. CALCIUM CITRATE [Concomitant]
  4. ANASTROZOLE [Suspect]
     Indication: OESTROGEN RECEPTOR POSITIVE BREAST CANCER
  5. NITROFURANTOIN [Concomitant]
     Dosage: POST COITAL, AS NEEDED

REACTIONS (1)
  - Lichen sclerosus [Not Recovered/Not Resolved]
